FAERS Safety Report 7513091-6 (Version None)
Quarter: 2011Q2

REPORT INFORMATION
  Report Type: 
  Country: None (occurrence: None)
  Receive Date: 20110531
  Receipt Date: 20110525
  Transmission Date: 20111010
  Serious: Yes (Other)
  Sender: FDA-Public Use
  Company Number: US-PFIZER INC-2009217651

PATIENT
  Sex: Female
  Weight: 83 kg

DRUGS (16)
  1. CYCRIN [Suspect]
     Indication: HORMONE REPLACEMENT THERAPY
     Dosage: 2.5 MG, UNK
     Route: 065
     Dates: start: 19970822, end: 19990311
  2. ESTRADIOL [Suspect]
     Dosage: 0.5 MG, UNK
     Dates: start: 19990328, end: 20000710
  3. MEDROXYPROGESTERONE ACETATE [Suspect]
     Indication: HORMONE REPLACEMENT THERAPY
     Dosage: 5 MG, UNK
     Route: 065
     Dates: start: 19991123, end: 20000710
  4. ESTRACE [Suspect]
     Dosage: 0.5 MG, UNK
     Dates: start: 19990328, end: 20000710
  5. ESTRADIOL [Suspect]
     Indication: HORMONE REPLACEMENT THERAPY
     Dosage: 1 MG, UNK
     Route: 065
     Dates: start: 19970822, end: 19990311
  6. DYAZIDE [Concomitant]
     Indication: BLOOD PRESSURE DECREASED
     Dosage: UNK
     Route: 065
     Dates: start: 20010101, end: 20100101
  7. ESTRACE [Suspect]
     Indication: HORMONE REPLACEMENT THERAPY
     Dosage: 1 MG, UNK
     Dates: start: 19951103, end: 19970508
  8. TRIAMTERENE [Concomitant]
     Indication: DIURETIC THERAPY
     Dosage: UNK
     Route: 065
     Dates: start: 19990101, end: 20030101
  9. PROVERA [Suspect]
     Dosage: 2.5 MG, UNK
     Dates: start: 19970822, end: 19990311
  10. CHOLESTYRAMINE RESIN [Concomitant]
     Indication: BLOOD CHOLESTEROL DECREASED
     Dosage: UNK
     Route: 065
     Dates: start: 20010101, end: 20070101
  11. PREMARIN [Suspect]
     Indication: HORMONE REPLACEMENT THERAPY
     Dosage: UNK
     Dates: start: 19830101, end: 20000101
  12. ASPIRIN [Concomitant]
     Indication: ANTICOAGULANT THERAPY
     Dosage: UNK
     Route: 065
     Dates: start: 20000701, end: 20030101
  13. LOPRESSOR [Concomitant]
     Indication: BLOOD PRESSURE DECREASED
     Dosage: UNK
     Route: 065
     Dates: start: 20000101, end: 20030101
  14. METOPROLOL [Concomitant]
     Indication: BLOOD PRESSURE DECREASED
     Dosage: UNK
     Route: 065
     Dates: start: 20010101, end: 20050101
  15. PROVERA [Suspect]
     Indication: HORMONE REPLACEMENT THERAPY
     Dosage: 5 MG, UNK
     Route: 048
     Dates: start: 19951103, end: 19970508
  16. CYCRIN [Suspect]
     Dosage: 5 MG, UNK
     Dates: start: 19990328, end: 19991031

REACTIONS (1)
  - BREAST CANCER FEMALE [None]
